FAERS Safety Report 5050804-X (Version None)
Quarter: 2006Q3

REPORT INFORMATION
  Report Type: 
  Country: None (occurrence: None)
  Receive Date: 20060710
  Receipt Date: 20060626
  Transmission Date: 20061208
  Serious: Yes (Other)
  Sender: FDA-Public Use
  Company Number: GXKR2006GB03699

PATIENT
  Age: 54 Year
  Sex: Female
  Weight: 90 kg

DRUGS (7)
  1. CLONIDINE [Suspect]
     Indication: FLUSHING
     Dosage: 0.3 MG, TID, ORAL; SEE IMAGE
     Route: 048
     Dates: start: 20060522, end: 20060525
  2. BETAMETHASONE [Concomitant]
  3. DIHYDROCODONE (DIHYDROCODEINE) [Concomitant]
  4. GABAPENTIN [Concomitant]
  5. LISINOPRIL [Concomitant]
  6. OMEPRAZOLE [Concomitant]
  7. VERAPAMIL [Concomitant]

REACTIONS (3)
  - ABASIA [None]
  - DIPLEGIA [None]
  - HEADACHE [None]
